FAERS Safety Report 18663274 (Version 1)
Quarter: 2020Q4

REPORT INFORMATION
  Report Type: Spontaneous
  Country: US (occurrence: US)
  Receive Date: 20201224
  Receipt Date: 20201224
  Transmission Date: 20210114
  Serious: Yes (Hospitalization, Other)
  Sender: FDA-Public Use
  Company Number: US-LUPIN PHARMACEUTICALS INC.-2020-10680

PATIENT
  Age: 35 Year
  Sex: Male

DRUGS (6)
  1. DIVALPROEX SODIUM. [Concomitant]
     Active Substance: DIVALPROEX SODIUM
     Dosage: 1500 MILLIGRAM
     Route: 048
  2. QUETIAPINE. [Suspect]
     Active Substance: QUETIAPINE
     Indication: BIPOLAR DISORDER
     Dosage: 200 MILLIGRAM
     Route: 048
  3. NALTREXONE [Interacting]
     Active Substance: NALTREXONE
     Dosage: 50 MILLIGRAM
     Route: 048
  4. SERTRALINE [Concomitant]
     Active Substance: SERTRALINE HYDROCHLORIDE
     Indication: BIPOLAR DISORDER
     Dosage: 100 MILLIGRAM
     Route: 048
  5. NALTREXONE [Interacting]
     Active Substance: NALTREXONE
     Indication: ALCOHOLISM
     Dosage: 25 MILLIGRAM (SLOW UPTITRATION)
     Route: 048
  6. DIVALPROEX SODIUM. [Concomitant]
     Active Substance: DIVALPROEX SODIUM
     Indication: BIPOLAR DISORDER
     Dosage: 500 MILLIGRAM
     Route: 048

REACTIONS (3)
  - Drug interaction [Unknown]
  - Priapism [Recovered/Resolved]
  - Electrocardiogram QT prolonged [Unknown]
